FAERS Safety Report 13663131 (Version 5)
Quarter: 2017Q4

REPORT INFORMATION
  Report Type: Report from Study
  Country: US (occurrence: US)
  Receive Date: 20170619
  Receipt Date: 20171002
  Transmission Date: 20180320
  Serious: Yes (Hospitalization, Other)
  Sender: FDA-Public Use
  Company Number: US-GILEAD-2017-0278492

PATIENT
  Age: 78 Year
  Sex: Female
  Weight: 57.14 kg

DRUGS (2)
  1. AMBRISENTAN [Suspect]
     Active Substance: AMBRISENTAN
     Indication: PULMONARY ARTERIAL HYPERTENSION
     Dosage: 5 MG, QD
     Route: 065
     Dates: start: 20170331, end: 20170828
  2. AMBRISENTAN [Suspect]
     Active Substance: AMBRISENTAN
     Dosage: 2.5 MG, QD
     Route: 065
     Dates: start: 20170810

REACTIONS (8)
  - Weight decreased [Unknown]
  - Off label use [Recovered/Resolved]
  - Feeling abnormal [Unknown]
  - Hair disorder [Unknown]
  - Asthenia [Unknown]
  - Cardiac failure congestive [Unknown]
  - Decreased appetite [Unknown]
  - Drug dose omission [Recovered/Resolved]
